FAERS Safety Report 12799521 (Version 1)
Quarter: 2016Q3

REPORT INFORMATION
  Report Type: Spontaneous
  Country: FR (occurrence: FR)
  Receive Date: 20160930
  Receipt Date: 20160930
  Transmission Date: 20161109
  Serious: Yes (Hospitalization)
  Sender: FDA-Public Use
  Company Number: FR-JNJFOC-20160925869

PATIENT
  Age: 21 Year
  Sex: Male

DRUGS (4)
  1. XEPLION [Suspect]
     Active Substance: PALIPERIDONE PALMITATE
     Indication: DELUSIONAL DISORDER, UNSPECIFIED TYPE
     Route: 030
     Dates: start: 20160816
  2. XEPLION [Suspect]
     Active Substance: PALIPERIDONE PALMITATE
     Indication: DELUSIONAL DISORDER, UNSPECIFIED TYPE
     Dosage: DELTOID MUSCLE
     Route: 030
     Dates: start: 20160809, end: 20160809
  3. RISPERIDONE. [Suspect]
     Active Substance: RISPERIDONE
     Indication: DELUSIONAL DISORDER, UNSPECIFIED TYPE
     Route: 048
     Dates: start: 20160726, end: 20160826
  4. TERCIAN [Suspect]
     Active Substance: CYAMEMAZINE
     Indication: ANXIETY
     Dosage: 40MG/ML25 DROPS 3TIMES A DAY (IN THE MORNING, THE MIDDAY AND THE EVENING)
     Route: 065
     Dates: start: 20160726, end: 20160810

REACTIONS (11)
  - Tachycardia [Recovering/Resolving]
  - Psychomotor retardation [Recovering/Resolving]
  - Depressed level of consciousness [Recovering/Resolving]
  - Extrapyramidal disorder [Recovering/Resolving]
  - Dysuria [Recovering/Resolving]
  - Off label use [Unknown]
  - Malaise [Recovering/Resolving]
  - Palpitations [Recovering/Resolving]
  - Tremor [Recovering/Resolving]
  - Product use issue [Unknown]
  - Sedation [Recovering/Resolving]

NARRATIVE: CASE EVENT DATE: 20160820
